FAERS Safety Report 16280559 (Version 1)
Quarter: 2019Q2

REPORT INFORMATION
  Report Type: Spontaneous
  Country: US (occurrence: US)
  Receive Date: 20190507
  Receipt Date: 20190507
  Transmission Date: 20190711
  Serious: Yes (Other)
  Sender: FDA-Public Use
  Company Number: US-LUPIN PHARMACEUTICALS INC.-2019-02672

PATIENT
  Age: 72 Year
  Sex: Female

DRUGS (12)
  1. ARIPIPRAZOLE. [Suspect]
     Active Substance: ARIPIPRAZOLE
     Indication: SCHIZOAFFECTIVE DISORDER
     Dosage: 4 MILLIGRAM
     Route: 065
  2. LEVOFLOXACIN. [Concomitant]
     Active Substance: LEVOFLOXACIN
     Indication: SEPSIS
     Dosage: UNK
     Route: 065
     Dates: start: 20140226
  3. LURASIDONE [Suspect]
     Active Substance: LURASIDONE
     Indication: SCHIZOAFFECTIVE DISORDER
     Dosage: 20 MILLIGRAM, QD
     Route: 065
     Dates: start: 20140127, end: 20140205
  4. LURASIDONE [Interacting]
     Active Substance: LURASIDONE
     Dosage: 40 MILLIGRAM, QD
     Route: 065
     Dates: start: 20140205, end: 20140215
  5. LURASIDONE [Interacting]
     Active Substance: LURASIDONE
     Dosage: 40 MILLIGRAM, QD
     Route: 065
     Dates: start: 20140219
  6. ZIPRASIDONE. [Suspect]
     Active Substance: ZIPRASIDONE
     Indication: SCHIZOAFFECTIVE DISORDER
     Dosage: 40 MILLIGRAM, BID
     Route: 065
     Dates: start: 20140309
  7. TOPIRAMATE. [Interacting]
     Active Substance: TOPIRAMATE
     Indication: PRODUCT USED FOR UNKNOWN INDICATION
     Dosage: UNK (STARTED A YEAR PRIOR TO HER FIRST PRESENTATION)
     Route: 065
  8. PREDNISOLONE. [Concomitant]
     Active Substance: PREDNISOLONE
     Indication: SEPSIS
     Dosage: 60 MG WITH A TAPERING REGIMEN
     Route: 065
     Dates: start: 20140226
  9. LURASIDONE [Interacting]
     Active Substance: LURASIDONE
     Dosage: 20 MILLIGRAM, QD
     Route: 065
     Dates: start: 2014
  10. PREDNISOLONE. [Concomitant]
     Active Substance: PREDNISOLONE
     Indication: PNEUMONIA
  11. LURASIDONE [Interacting]
     Active Substance: LURASIDONE
     Dosage: 20 MILLIGRAM, QD
     Route: 065
     Dates: start: 20140215, end: 20140219
  12. LEVOFLOXACIN. [Concomitant]
     Active Substance: LEVOFLOXACIN
     Indication: PNEUMONIA

REACTIONS (5)
  - Rash maculo-papular [Recovered/Resolved]
  - Drug interaction [Unknown]
  - Parkinsonism [Recovered/Resolved]
  - Rash pruritic [Recovered/Resolved]
  - Rash erythematous [Recovered/Resolved]

NARRATIVE: CASE EVENT DATE: 2014
